FAERS Safety Report 15659444 (Version 4)
Quarter: 2020Q2

REPORT INFORMATION
  Report Type: Report from Study
  Country: CO (occurrence: CO)
  Receive Date: 20181127
  Receipt Date: 20200629
  Transmission Date: 20200713
  Serious: Yes (Hospitalization, Other)
  Sender: FDA-Public Use
  Company Number: CO-ASTELLAS-2018US050535

PATIENT
  Age: 35 Year
  Sex: Male

DRUGS (8)
  1. TACROLIMUS. [Suspect]
     Active Substance: TACROLIMUS
     Route: 048
  2. ACETAMINOPHEN. [Concomitant]
     Active Substance: ACETAMINOPHEN
     Indication: PAIN
     Dosage: 2 IN THE MORNING AND 2 AT NIGHT
     Route: 065
  3. TACROLIMUS. [Suspect]
     Active Substance: TACROLIMUS
     Route: 048
     Dates: start: 201905
  4. CLONIDINE. [Concomitant]
     Active Substance: CLONIDINE
     Indication: HYPERTENSION
     Dosage: 250 MG, EVERY 12 HOURS (1 IN THE MORNING AND 1 AT NIGHT)
     Route: 048
  5. MYCOPHENOLATE [Concomitant]
     Active Substance: MYCOPHENOLIC ACID
     Indication: PRODUCT USED FOR UNKNOWN INDICATION
     Dosage: UNK UNK, UNKNOWN FREQ.
     Route: 065
  6. TACROLIMUS. [Suspect]
     Active Substance: TACROLIMUS
     Indication: RENAL TRANSPLANT
     Route: 048
     Dates: start: 20140706, end: 201905
  7. AZATHIOPRINE. [Concomitant]
     Active Substance: AZATHIOPRINE
     Indication: TRANSPLANT
     Dosage: 2 DF, ONCE DAILY AT NIGHT
     Route: 048
     Dates: start: 20181119
  8. NIFEDIPINE. [Concomitant]
     Active Substance: NIFEDIPINE
     Indication: PRODUCT USED FOR UNKNOWN INDICATION
     Dosage: 1 DF, ONCE DAILY (MORNING)
     Route: 048

REACTIONS (13)
  - Epistaxis [Recovered/Resolved]
  - Dysstasia [Unknown]
  - Kidney transplant rejection [Not Recovered/Not Resolved]
  - Pain in extremity [Not Recovered/Not Resolved]
  - Gastrointestinal inflammation [Recovering/Resolving]
  - Product distribution issue [Unknown]
  - Gastrointestinal pain [Recovering/Resolving]
  - Urinary tract infection [Not Recovered/Not Resolved]
  - Chronic allograft nephropathy [Not Recovered/Not Resolved]
  - Colitis [Recovered/Resolved]
  - Gastrointestinal inflammation [Recovered/Resolved]
  - Blood creatinine abnormal [Not Recovered/Not Resolved]
  - Haemorrhoids [Recovering/Resolving]

NARRATIVE: CASE EVENT DATE: 201810
